FAERS Safety Report 8256546-1 (Version None)
Quarter: 2012Q2

REPORT INFORMATION
  Report Type: 
  Country: None (occurrence: None)
  Receive Date: 20120402
  Receipt Date: 20120402
  Transmission Date: 20120825
  Serious: Yes (Other)
  Sender: FDA-Public Use
  Company Number: None

PATIENT
  Age: 75 Year
  Sex: Female

DRUGS (9)
  1. LEVOTHYROXINE SODIUM [Concomitant]
  2. CITALOPRAM HYDROBROMIDE [Concomitant]
  3. METHADONE HCL [Concomitant]
  4. ASPIRIN [Concomitant]
  5. HYDROMORPHONE HCL [Concomitant]
  6. REVLIMID [Suspect]
     Indication: MULTIPLE MYELOMA
     Dosage: 10MG QDX21/28D PO
     Route: 048
     Dates: start: 20100401, end: 20100601
  7. REVLIMID [Suspect]
     Indication: MULTIPLE MYELOMA
     Dosage: 10MG QDX21/28D PO
     Route: 048
     Dates: start: 20110601, end: 20111001
  8. FENTANYL [Concomitant]
  9. VITAMIN D [Concomitant]

REACTIONS (3)
  - DEPRESSION [None]
  - FATIGUE [None]
  - QUALITY OF LIFE DECREASED [None]
